FAERS Safety Report 13524119 (Version 2)
Quarter: 2017Q3

REPORT INFORMATION
  Report Type: Spontaneous
  Country: US (occurrence: US)
  Receive Date: 20170508
  Receipt Date: 20170726
  Transmission Date: 20171127
  Serious: Yes (Other)
  Sender: FDA-Public Use
  Company Number: US-AKORN PHARMACEUTICALS-2017AKN00539

PATIENT
  Age: 14 Year
  Sex: Male
  Weight: 86.17 kg

DRUGS (3)
  1. MYORISAN [Suspect]
     Active Substance: ISOTRETINOIN
     Indication: ACNE
     Dosage: 60 MG, 1X/DAY
     Route: 048
  2. MYORISAN [Suspect]
     Active Substance: ISOTRETINOIN
     Indication: ACNE
     Dosage: 40 MG, 1X/DAY
     Route: 048
  3. MYORISAN [Suspect]
     Active Substance: ISOTRETINOIN
     Indication: ACNE
     Dosage: 80 MG, 1X/DAY
     Route: 048
     Dates: end: 20170424

REACTIONS (7)
  - Unevaluable event [Unknown]
  - Headache [Not Recovered/Not Resolved]
  - Influenza like illness [Not Recovered/Not Resolved]
  - White blood cell count increased [Unknown]
  - Paediatric autoimmune neuropsychiatric disorders associated with streptococcal infection [Not Recovered/Not Resolved]
  - Seizure [Not Recovered/Not Resolved]
  - Haematochezia [Not Recovered/Not Resolved]

NARRATIVE: CASE EVENT DATE: 2017
